FAERS Safety Report 6546433-9 (Version None)
Quarter: 2010Q1

REPORT INFORMATION
  Report Type: 
  Country: None (occurrence: None)
  Receive Date: 20100122
  Receipt Date: 20100112
  Transmission Date: 20100710
  Serious: Yes (Hospitalization)
  Sender: FDA-Public Use
  Company Number: PHHY2010GB00850

PATIENT
  Sex: Male

DRUGS (2)
  1. CLOZARIL [Suspect]
     Indication: SCHIZOPHRENIA
     Dosage: UNK
     Dates: start: 20080909, end: 20100104
  2. CLOZARIL [Suspect]
     Dosage: UNK
     Dates: start: 20100107

REACTIONS (4)
  - CONSTIPATION [None]
  - FAECALOMA [None]
  - GASTROINTESTINAL SURGERY [None]
  - INTESTINAL FUNCTIONAL DISORDER [None]
